FAERS Safety Report 6679583-7 (Version None)
Quarter: 2010Q2

REPORT INFORMATION
  Report Type: 
  Country: None (occurrence: None)
  Receive Date: 20100413
  Receipt Date: 20100407
  Transmission Date: 20101027
  Serious: Yes (Hospitalization)
  Sender: FDA-Public Use
  Company Number: JP-BAYER-201011724BYL

PATIENT
  Age: 70 Year
  Sex: Male

DRUGS (3)
  1. ASPIRIN [Suspect]
     Indication: DRUG USE FOR UNKNOWN INDICATION
     Route: 048
  2. ANTI-DIABETIC DRUG [Concomitant]
     Indication: DIABETES MELLITUS
     Route: 048
  3. UNKNOWN DRUG [Concomitant]
     Indication: DRUG USE FOR UNKNOWN INDICATION
     Route: 048

REACTIONS (2)
  - LARGE INTESTINAL STRICTURE [None]
  - LARGE INTESTINAL ULCER [None]
